FAERS Safety Report 5125027-6 (Version None)
Quarter: 2006Q4

REPORT INFORMATION
  Report Type: 
  Country: None (occurrence: None)
  Receive Date: 20061011
  Receipt Date: 20061006
  Transmission Date: 20070319
  Serious: Yes (Hospitalization, Other)
  Sender: FDA-Public Use
  Company Number: HK-JNJFOC-20061001824

PATIENT
  Age: 7 Year
  Sex: Female

DRUGS (10)
  1. LOPERAMIDE [Suspect]
     Indication: ABDOMINAL PAIN
  2. LOPERAMIDE [Suspect]
     Indication: VOMITING
  3. HYOSCINE METHYLBROMIDE [Suspect]
     Indication: ABDOMINAL PAIN
  4. HYOSCINE METHYLBROMIDE [Suspect]
     Indication: VOMITING
  5. LOMOTIL [Suspect]
     Indication: DRUG USE FOR UNKNOWN INDICATION
  6. HYOSCINE HBR HYT [Suspect]
     Indication: DRUG USE FOR UNKNOWN INDICATION
  7. CHLORPHENIRAMINE MALEATE [Suspect]
     Indication: DRUG USE FOR UNKNOWN INDICATION
  8. DIMETHICONE [Concomitant]
     Indication: ABDOMINAL PAIN
  9. DIMETHICONE [Concomitant]
     Indication: VOMITING
  10. ACETAMINOPHEN [Concomitant]

REACTIONS (3)
  - ANTICHOLINERGIC SYNDROME [None]
  - DEHYDRATION [None]
  - ILEUS [None]
